FAERS Safety Report 19351918 (Version 2)
Quarter: 2021Q2

REPORT INFORMATION
  Report Type: Spontaneous
  Country: ZA (occurrence: ZA)
  Receive Date: 20210531
  Receipt Date: 20210607
  Transmission Date: 20210717
  Serious: Yes (Other)
  Sender: FDA-Public Use
  Company Number: ZA-AMGEN-ZAFSP2021082815

PATIENT
  Age: 65 Year
  Sex: Female

DRUGS (1)
  1. ENBREL [Suspect]
     Active Substance: ETANERCEPT
     Indication: PRODUCT USED FOR UNKNOWN INDICATION
     Dosage: 50 MG, WEEKLY
     Route: 058
     Dates: start: 20210317, end: 2021

REACTIONS (4)
  - Condition aggravated [Not Recovered/Not Resolved]
  - Macular degeneration [Unknown]
  - Blepharitis [Unknown]
  - Contusion [Unknown]

NARRATIVE: CASE EVENT DATE: 2021
